FAERS Safety Report 11184929 (Version 2)
Quarter: 2015Q2

REPORT INFORMATION
  Report Type: Report from Study
  Country: US (occurrence: US)
  Receive Date: 20150612
  Receipt Date: 20150625
  Transmission Date: 20150821
  Serious: Yes (Death, Life-Threatening, Hospitalization, Other)
  Sender: FDA-Public Use
  Company Number: US-ACTELION-A-US2015-119039

PATIENT
  Age: 76 Year
  Sex: Female

DRUGS (8)
  1. TRACLEER [Suspect]
     Active Substance: BOSENTAN\BOSENTAN MONOHYDRATE
     Indication: PULMONARY ARTERIAL HYPERTENSION
     Dosage: UNK
     Route: 048
     Dates: end: 20150525
  2. METOPROLOL [Concomitant]
     Active Substance: METOPROLOL
  3. TIOTROPIUM [Concomitant]
     Active Substance: TIOTROPIUM
  4. PAROXETINE [Concomitant]
     Active Substance: PAROXETINE\PAROXETINE HYDROCHLORIDE
  5. BUDESONIDE. [Concomitant]
     Active Substance: BUDESONIDE
  6. TRACLEER [Suspect]
     Active Substance: BOSENTAN\BOSENTAN MONOHYDRATE
     Dosage: 125 MG, BID
     Route: 048
     Dates: end: 20150525
  7. SILDENAFIL. [Concomitant]
     Active Substance: SILDENAFIL
  8. PANTOPRAZOLE [Concomitant]
     Active Substance: PANTOPRAZOLE SODIUM

REACTIONS (13)
  - Pulmonary arterial hypertension [Fatal]
  - Blood bilirubin increased [Fatal]
  - Blood alkaline phosphatase increased [Fatal]
  - Right ventricular failure [Fatal]
  - Alanine aminotransferase increased [Fatal]
  - Cor pulmonale [Fatal]
  - Condition aggravated [Fatal]
  - Liver function test abnormal [Fatal]
  - Aspartate aminotransferase increased [Fatal]
  - Pulmonary oedema [Unknown]
  - Enterococcal infection [Unknown]
  - Dyspnoea [Unknown]
  - Foot fracture [Unknown]

NARRATIVE: CASE EVENT DATE: 20150525
